FAERS Safety Report 6237430-1 (Version None)
Quarter: 2009Q2

REPORT INFORMATION
  Report Type: 
  Country: None (occurrence: None)
  Receive Date: 20090619
  Receipt Date: 20090609
  Transmission Date: 20091009
  Serious: Yes (Hospitalization)
  Sender: FDA-Public Use
  Company Number: FR-WYE-H09768809

PATIENT
  Sex: Male

DRUGS (12)
  1. CORDARONE [Suspect]
     Indication: ATRIAL FIBRILLATION
     Route: 048
     Dates: start: 20080101
  2. COUMADIN [Interacting]
     Indication: THROMBOSIS PROPHYLAXIS
     Dosage: 2 MG DAILY DEPENDING ON INR
     Route: 048
     Dates: start: 20080101, end: 20090518
  3. COUMADIN [Interacting]
     Dosage: 2 MG DAILY DEPENDING ON INR
     Route: 048
     Dates: start: 20090520, end: 20090524
  4. SUTENT [Interacting]
     Indication: RENAL CANCER
     Route: 048
     Dates: start: 20090429
  5. TRIFLUCAN [Interacting]
     Indication: MYCOSIS FUNGOIDES
     Route: 048
     Dates: start: 20090429
  6. DAONIL [Concomitant]
     Route: 048
     Dates: end: 20090101
  7. DETENSIEL [Concomitant]
     Route: 048
  8. PERINDOPRIL ERBUMINE [Concomitant]
     Route: 048
  9. EZETROL [Concomitant]
     Route: 048
     Dates: end: 20090519
  10. GLUCOR [Concomitant]
     Dosage: 250 MG
     Route: 048
  11. KARDEGIC [Interacting]
     Indication: THROMBOSIS PROPHYLAXIS
     Route: 048
  12. CRESTOR [Interacting]
     Indication: HYPERCHOLESTEROLAEMIA
     Route: 048
     Dates: end: 20090519

REACTIONS (4)
  - DRUG INTERACTION [None]
  - GINGIVAL BLEEDING [None]
  - HAEMOPTYSIS [None]
  - INTERNATIONAL NORMALISED RATIO INCREASED [None]
